FAERS Safety Report 7090274-3 (Version None)
Quarter: 2010Q4

REPORT INFORMATION
  Report Type: 
  Country: None (occurrence: None)
  Receive Date: 20101105
  Receipt Date: 20101105
  Transmission Date: 20110411
  Serious: Yes (Hospitalization)
  Sender: FDA-Public Use
  Company Number: None

PATIENT
  Age: 51 Year
  Sex: Female
  Weight: 96 kg

DRUGS (13)
  1. CARVEDILOL [Suspect]
     Indication: CARDIAC FAILURE
     Dosage: BID PO    HOURS
     Route: 048
     Dates: start: 20101029, end: 20101030
  2. LORTAB [Concomitant]
  3. XANAX [Concomitant]
  4. AMIODARONE [Concomitant]
  5. ASPIRIN [Concomitant]
  6. COLACE [Concomitant]
  7. ENALAPRIL MALEATE [Concomitant]
  8. FEXOFENADINE HCL [Concomitant]
  9. LASIX [Concomitant]
  10. METFORMIN HCL [Concomitant]
  11. IMDUR [Concomitant]
  12. EFFIENT [Concomitant]
  13. PROTONIX [Concomitant]

REACTIONS (4)
  - CHEST PAIN [None]
  - DYSPNOEA [None]
  - FEELING HOT [None]
  - MALAISE [None]
